FAERS Safety Report 4577422-1 (Version None)
Quarter: 2005Q1

REPORT INFORMATION
  Report Type: 
  Country: None (occurrence: None)
  Receive Date: 20050210
  Receipt Date: 20050107
  Transmission Date: 20050727
  Serious: Yes (Death)
  Sender: FDA-Public Use
  Company Number: US-AMGEN-US106446

PATIENT
  Sex: Male

DRUGS (3)
  1. NEULASTA [Suspect]
     Indication: CHEMOTHERAPY
     Dates: start: 20040101
  2. AVASTIN [Concomitant]
  3. FLUOROURACIL [Concomitant]

REACTIONS (5)
  - BONE PAIN [None]
  - DISEASE PROGRESSION [None]
  - FATIGUE [None]
  - GASTRIC CANCER [None]
  - INFLUENZA LIKE ILLNESS [None]
